FAERS Safety Report 7242750-8 (Version None)
Quarter: 2011Q1

REPORT INFORMATION
  Report Type: 
  Country: None (occurrence: None)
  Receive Date: 20110125
  Receipt Date: 20110119
  Transmission Date: 20110831
  Serious: Yes (Death, Life-Threatening, Hospitalization)
  Sender: FDA-Public Use
  Company Number: BE-BRISTOL-MYERS SQUIBB COMPANY-15238017

PATIENT
  Age: 65 Year
  Sex: Male
  Weight: 56 kg

DRUGS (11)
  1. CETUXIMAB [Suspect]
     Indication: HEAD AND NECK CANCER
     Dosage: REGIMEN 2: 250MG/M2 WEEKLY.LAST DOSE ON 30JUL2010,400MG/M2:06MAY2010-06MAY10(1 DAY).
     Route: 042
     Dates: start: 20100506
  2. ALIMTA [Suspect]
     Indication: HEAD AND NECK CANCER
     Dosage: VIAL.LAST DOSE ON 30JUL2010
     Route: 042
     Dates: start: 20100506
  3. VITAMIN B-12 [Concomitant]
     Indication: PROPHYLAXIS
     Dates: start: 20100427, end: 20100803
  4. ZANTAC [Concomitant]
     Indication: PROPHYLAXIS
     Dates: start: 20100419
  5. PRIMPERAN TAB [Concomitant]
     Indication: NAUSEA
     Dates: start: 20100527
  6. CISPLATIN [Suspect]
     Indication: HEAD AND NECK CANCER
     Dosage: LAST DOSE ON 30JUL2010
     Route: 042
     Dates: start: 20100506
  7. LEXOTAN [Concomitant]
     Indication: PROPHYLAXIS
     Dates: start: 20100321
  8. EMCONCOR [Concomitant]
     Indication: HYPERTENSION
     Dates: start: 20100424, end: 20100701
  9. DAFALGAN [Concomitant]
     Indication: PROPHYLAXIS
     Dates: start: 20100414
  10. FOLIC ACID [Concomitant]
     Indication: PROPHYLAXIS
     Dates: start: 20100426, end: 20100803
  11. DEXAMETHASONE [Concomitant]
     Indication: PROPHYLAXIS
     Dates: start: 20100728, end: 20100731

REACTIONS (2)
  - PNEUMONIA ASPIRATION [None]
  - IMPLANT SITE HAEMORRHAGE [None]
